FAERS Safety Report 21132990 (Version 2)
Quarter: 2022Q3

REPORT INFORMATION
  Report Type: Report from Study
  Country: DE (occurrence: DE)
  Receive Date: 20220726
  Receipt Date: 20220901
  Transmission Date: 20221027
  Serious: Yes (Hospitalization)
  Sender: FDA-Public Use
  Company Number: DE-NOVARTISPH-NVSC2022DE168217

PATIENT
  Sex: Male

DRUGS (5)
  1. METHOTREXATE [Suspect]
     Active Substance: METHOTREXATE
     Indication: Spinal osteoarthritis
     Dosage: 15 MG
     Route: 058
     Dates: start: 20080319
  2. METHOTREXATE [Suspect]
     Active Substance: METHOTREXATE
     Indication: Psoriatic arthropathy
     Dosage: 10 MG
     Route: 058
     Dates: start: 20080319, end: 20200113
  3. METHOTREXATE [Suspect]
     Active Substance: METHOTREXATE
     Dosage: 10 MG
     Route: 058
     Dates: start: 20200203
  4. METHOTREXATE [Suspect]
     Active Substance: METHOTREXATE
     Dosage: 10 MG
     Route: 058
     Dates: start: 20211116
  5. UNSPECIFIED INGREDIENT [Suspect]
     Active Substance: UNSPECIFIED INGREDIENT
     Indication: Product used for unknown indication
     Dosage: UNK
     Route: 065

REACTIONS (2)
  - Adenocarcinoma pancreas [Recovered/Resolved]
  - Ischaemic cerebral infarction [Unknown]

NARRATIVE: CASE EVENT DATE: 20200111
